FAERS Safety Report 14893567 (Version 2)
Quarter: 2018Q2

REPORT INFORMATION
  Report Type: Report from Study
  Country: US (occurrence: US)
  Receive Date: 20180514
  Receipt Date: 20180604
  Transmission Date: 20180711
  Serious: Yes (Other)
  Sender: FDA-Public Use
  Company Number: US-SHIRE-US201806096

PATIENT
  Sex: Female
  Weight: 73.47 kg

DRUGS (2)
  1. FIRAZYR [Suspect]
     Active Substance: ICATIBANT ACETATE
     Indication: IMMUNE SYSTEM DISORDER
     Dosage: 30 MG, AS REQ^D FOR HAE ATTACKS AT 6 HOURS INTERVALS (30 MG/3ML)
     Route: 058
     Dates: start: 20151201
  2. CINRYZE [Suspect]
     Active Substance: HUMAN C1-ESTERASE INHIBITOR
     Indication: HEREDITARY ANGIOEDEMA
     Dosage: 500 IU, 2X A WEEK
     Route: 042
     Dates: start: 20151201

REACTIONS (3)
  - Hereditary angioedema [Unknown]
  - Exposure during pregnancy [Unknown]
  - Prescribed overdose [Unknown]
